FAERS Safety Report 15022831 (Version 1)
Quarter: 2018Q2

REPORT INFORMATION
  Report Type: Spontaneous
  Country: US (occurrence: US)
  Receive Date: 20180524
  Receipt Date: 20180524
  Transmission Date: 20180711
  Serious: Yes (Hospitalization)
  Sender: FDA-Public Use
  Company Number: None

PATIENT
  Age: 74 Year
  Sex: Male
  Weight: 83.01 kg

DRUGS (14)
  1. ALLOPURINOL. [Concomitant]
     Active Substance: ALLOPURINOL
  2. CARVEDILOL. [Concomitant]
     Active Substance: CARVEDILOL
  3. EZETIMIBE. [Concomitant]
     Active Substance: EZETIMIBE
  4. FUROSEMIDE. [Concomitant]
     Active Substance: FUROSEMIDE
  5. ALBUTEROL. [Concomitant]
     Active Substance: ALBUTEROL
  6. INSULIN,GLARGINE,HUMAN [Concomitant]
  7. ATORVASTATIN CA [Concomitant]
  8. TERAZOSIN HCL [Concomitant]
     Active Substance: TERAZOSIN HYDROCHLORIDE
  9. TIOTROPIUM [Concomitant]
     Active Substance: TIOTROPIUM
  10. BUDESONIDE/FORMOTER [Concomitant]
  11. CASODEX [Suspect]
     Active Substance: BICALUTAMIDE
     Dates: end: 20180503
  12. OMEPRAZOLE. [Concomitant]
     Active Substance: OMEPRAZOLE
  13. LEUPROLIDE ACETATE. [Suspect]
     Active Substance: LEUPROLIDE ACETATE
     Dates: end: 20180330
  14. LISINOPRIL. [Concomitant]
     Active Substance: LISINOPRIL

REACTIONS (5)
  - Nausea [None]
  - Epistaxis [None]
  - Dysgeusia [None]
  - Viral infection [None]
  - Diarrhoea [None]

NARRATIVE: CASE EVENT DATE: 20180503
